FAERS Safety Report 11070595 (Version 2)
Quarter: 2015Q2

REPORT INFORMATION
  Report Type: Report from Study
  Country: AU (occurrence: AU)
  Receive Date: 20150427
  Receipt Date: 20150504
  Transmission Date: 20150821
  Serious: Yes (Hospitalization)
  Sender: FDA-Public Use
  Company Number: AU-AMGEN-2014-2528

PATIENT
  Age: 75 Year
  Sex: Male
  Weight: 90 kg

DRUGS (29)
  1. CARFILZOMIB [Suspect]
     Active Substance: CARFILZOMIB
     Indication: PLASMA CELL MYELOMA
     Dosage: FREQ. TEXT: DAYS 1, 2
     Route: 042
     Dates: start: 20140701, end: 20140702
  2. KYTRIL [Concomitant]
     Active Substance: GRANISETRON HYDROCHLORIDE
     Indication: PROPHYLAXIS OF NAUSEA AND VOMITING
     Dosage: 2 MG, AS NECESSARY
     Route: 048
     Dates: start: 20140701, end: 20141111
  3. MAXOLON [Concomitant]
     Active Substance: METOCLOPRAMIDE HYDROCHLORIDE
     Indication: PROPHYLAXIS OF NAUSEA AND VOMITING
     Dosage: 10 MG, AS NECESSARY
     Route: 048
     Dates: start: 20140701, end: 20141111
  4. CARFILZOMIB [Suspect]
     Active Substance: CARFILZOMIB
     Dosage: FREQUENCY: 8 EVERY 42 DAYS; FREQ. TEXT: DAYS 1,2,8,9,22,23,29,30, EVERY 42 DAYS
     Route: 042
     Dates: start: 20140812, end: 20141015
  5. ZOLEDRONIC ACID [Concomitant]
     Active Substance: ZOLEDRONIC ACID
     Indication: PROPHYLAXIS
     Dosage: 3 MG, QMO
     Route: 042
     Dates: start: 20141202
  6. DEXAMETHASONE. [Concomitant]
     Active Substance: DEXAMETHASONE
     Indication: CHILLS
     Dosage: 4 MG, UNK
     Route: 042
     Dates: start: 20141111, end: 20141112
  7. BACTRIM [Concomitant]
     Active Substance: SULFAMETHOXAZOLE\TRIMETHOPRIM
     Indication: PROPHYLAXIS
     Dosage: 40 MG, QD
     Route: 048
     Dates: start: 20140701
  8. PREDNISONE. [Suspect]
     Active Substance: PREDNISONE
     Indication: PLASMA CELL MYELOMA
     Dosage: FREQUENCY: 4 EVERY 42 DAYS; FREQ. TEXT: DAYS 1-4, EVERY 42 DAYS
     Route: 048
     Dates: start: 20140701
  9. VITAMIN B12 [Concomitant]
     Active Substance: CYANOCOBALAMIN
     Indication: VITAMIN B12 DEFICIENCY
  10. PREDNISONE. [Suspect]
     Active Substance: PREDNISONE
     Dosage: UNK
     Route: 048
  11. FOLIC ACID. [Concomitant]
     Active Substance: FOLIC ACID
     Indication: ANAEMIA
     Dosage: 5 MG, QD
     Route: 048
     Dates: start: 201303, end: 201411
  12. PREDNISONE. [Suspect]
     Active Substance: PREDNISONE
     Dosage: UNK
     Route: 048
  13. STEMETIL [Concomitant]
     Active Substance: PROCHLORPERAZINE MALEATE
     Indication: PROPHYLAXIS OF NAUSEA AND VOMITING
     Dosage: 5 MG, AS NECESSARY
     Route: 048
     Dates: start: 20140701, end: 20141111
  14. GLUCOSAMINE [Concomitant]
     Active Substance: GLUCOSAMINE
     Indication: ARTHRALGIA
     Dosage: 150 MG, QD
     Route: 048
  15. RANITIDINE [Concomitant]
     Active Substance: RANITIDINE\RANITIDINE HYDROCHLORIDE
     Indication: GASTROOESOPHAGEAL REFLUX DISEASE
     Dosage: 300 MG, QD
     Route: 048
     Dates: start: 20141022
  16. CHOLECALCIFEROL [Concomitant]
     Active Substance: CHOLECALCIFEROL
     Indication: ACUTE KIDNEY INJURY
     Dosage: 1000 IU, QD
     Route: 048
     Dates: start: 20141021
  17. MICERA [Concomitant]
     Indication: PRODUCT USED FOR UNKNOWN INDICATION
  18. CARFILZOMIB [Suspect]
     Active Substance: CARFILZOMIB
     Dosage: FREQUENCY: 6 EVERY 36 DAYS; FREQ. TEXT: DAYS 8, 9, 22, 23, 29, AND 30
     Route: 042
     Dates: start: 20140708, end: 20140730
  19. MELPHALAN [Suspect]
     Active Substance: MELPHALAN
     Indication: PLASMA CELL MYELOMA
     Dosage: FREQUENCY: 4 EVERY 42 DAYS; FREQ. TEXT: DAYS 1-4, EVERY 42 DAYS
     Route: 048
     Dates: start: 20140701
  20. VALACICLOVIR [Concomitant]
     Active Substance: VALACYCLOVIR HYDROCHLORIDE
     Indication: ANTIVIRAL PROPHYLAXIS
     Route: 048
     Dates: start: 20140701
  21. OSMOLAX                            /00163401/ [Concomitant]
     Indication: CONSTIPATION PROPHYLAXIS
     Dosage: 2 UNK, AS NECESSARY
     Route: 048
     Dates: start: 20140701
  22. METOPROLOL [Concomitant]
     Active Substance: METOPROLOL
     Indication: PRODUCT USED FOR UNKNOWN INDICATION
     Dosage: 25 MG, BID
     Route: 048
     Dates: start: 20140707, end: 20141111
  23. LERCAN [Concomitant]
     Active Substance: LERCANIDIPINE
     Indication: HYPERTENSION
     Dosage: 10 MG, QD
     Route: 048
  24. ASPIRIN                            /00002701/ [Concomitant]
     Active Substance: ASPIRIN
     Indication: PROPHYLAXIS
     Dosage: 100 MG, QD
     Route: 048
  25. ATORVASTATIN [Concomitant]
     Active Substance: ATORVASTATIN
     Indication: HYPERLIPIDAEMIA
     Dosage: 40 MG, QD
     Route: 048
  26. HEPARIN [Concomitant]
     Active Substance: HEPARIN SODIUM
     Indication: PROPHYLAXIS
     Dosage: 100 MG, QD
     Route: 048
     Dates: start: 20141029, end: 20141031
  27. LIGNOCAINE                         /00033401/ [Concomitant]
     Active Substance: LIDOCAINE HYDROCHLORIDE
     Indication: BIOPSY KIDNEY
     Dosage: 10 ML, QD
     Route: 050
     Dates: start: 20141029, end: 20141029
  28. DDAVP                              /00361901/ [Concomitant]
     Indication: BIOPSY KIDNEY
     Dosage: 16 MG, QD
     Route: 042
     Dates: start: 20141029, end: 20141029
  29. CALCIUM [Concomitant]
     Active Substance: CALCIUM
     Indication: ACUTE KIDNEY INJURY
     Dosage: 600 MG, QD
     Route: 048
     Dates: start: 20141021

REACTIONS (1)
  - Atrial tachycardia [Recovered/Resolved]

NARRATIVE: CASE EVENT DATE: 20141112
